FAERS Safety Report 15785426 (Version 1)
Quarter: 2019Q1

REPORT INFORMATION
  Report Type: Spontaneous
  Country: US (occurrence: US)
  Receive Date: 20190103
  Receipt Date: 20190103
  Transmission Date: 20190417
  Serious: No
  Sender: FDA-Public Use
  Company Number: US-B.I. PHARMACEUTICALS,INC./RIDGEFIELD-2019-BI-000151

PATIENT
  Sex: Female

DRUGS (1)
  1. COMBIVENT [Suspect]
     Active Substance: ALBUTEROL SULFATE\IPRATROPIUM BROMIDE
     Indication: ASTHMA
     Dosage: 1 PUFF AS NEEDED, NOT TO EXCEED SIX IN A DAY;  FORM STRENGTH: 20 MCG / 100 MCG;
     Route: 055
     Dates: start: 2013

REACTIONS (4)
  - Cough [Not Recovered/Not Resolved]
  - Bronchitis [Recovered/Resolved]
  - Off label use [Unknown]
  - Pneumonia [Recovered/Resolved]

NARRATIVE: CASE EVENT DATE: 2013
